FAERS Safety Report 4594144-1 (Version None)
Quarter: 2005Q1

REPORT INFORMATION
  Report Type: 
  Country: None (occurrence: None)
  Receive Date: 20050301
  Receipt Date: 20050225
  Transmission Date: 20050727
  Serious: Yes (Other)
  Sender: FDA-Public Use
  Company Number: US-GLAXOSMITHKLINE-A0547358A

PATIENT
  Age: 14 Year
  Sex: Male

DRUGS (1)
  1. PAXIL [Suspect]
     Indication: DRUG USE FOR UNKNOWN INDICATION
     Dosage: 150MG PER DAY
     Route: 048
     Dates: start: 20050201

REACTIONS (3)
  - MANIA [None]
  - NERVOUSNESS [None]
  - OVERDOSE [None]
